FAERS Safety Report 11637790 (Version 1)
Quarter: 2015Q4

REPORT INFORMATION
  Report Type: Spontaneous
  Country: US (occurrence: US)
  Receive Date: 20151016
  Receipt Date: 20151016
  Transmission Date: 20160304
  Serious: Yes (Other)
  Sender: FDA-Public Use
  Company Number: US-PFIZER INC-2015344664

PATIENT
  Age: 59 Year
  Sex: Female
  Weight: 53.52 kg

DRUGS (1)
  1. EFFEXOR XR [Suspect]
     Active Substance: VENLAFAXINE HYDROCHLORIDE
     Dosage: 150 MG, 1X/DAY

REACTIONS (6)
  - Rash [Unknown]
  - Dyspnoea [Unknown]
  - Product quality issue [Unknown]
  - Chest pain [Unknown]
  - Asthenia [Unknown]
  - Hot flush [Unknown]

NARRATIVE: CASE EVENT DATE: 201510
